FAERS Safety Report 7370655-0 (Version None)
Quarter: 2011Q1

REPORT INFORMATION
  Report Type: 
  Country: None (occurrence: None)
  Receive Date: 20110323
  Receipt Date: 20110308
  Transmission Date: 20110831
  Serious: No
  Sender: FDA-Public Use
  Company Number: US-BAYER-2011-022884

PATIENT
  Sex: Female
  Weight: 44 kg

DRUGS (1)
  1. ALEVE [Suspect]
     Indication: ARTHRITIS
     Dosage: DAILY DOSE 4 DF
     Route: 048

REACTIONS (1)
  - NO ADVERSE EVENT [None]
